FAERS Safety Report 15645096 (Version 2)
Quarter: 2019Q1

REPORT INFORMATION
  Report Type: Report from Study
  Country: IN (occurrence: IN)
  Receive Date: 20181121
  Receipt Date: 20190112
  Transmission Date: 20190417
  Serious: Yes (Death, Hospitalization, Other)
  Sender: FDA-Public Use
  Company Number: IN-BAYER-2018-084265

PATIENT
  Age: 73 Year
  Sex: Male

DRUGS (8)
  1. NEXAVAR [Suspect]
     Active Substance: SORAFENIB
     Indication: HEPATOCELLULAR CARCINOMA
     Dosage: 200 MG, QD
     Route: 048
     Dates: start: 20180223
  2. NEXAVAR [Suspect]
     Active Substance: SORAFENIB
     Indication: HEPATOCELLULAR CARCINOMA
     Dosage: 200 MG, QD
     Route: 048
     Dates: start: 201804, end: 201804
  3. NEXAVAR [Suspect]
     Active Substance: SORAFENIB
     Indication: HEPATOCELLULAR CARCINOMA
     Dosage: 400 MG DAILY
     Route: 048
     Dates: start: 201804, end: 201805
  4. NEXAVAR [Suspect]
     Active Substance: SORAFENIB
     Indication: HEPATOCELLULAR CARCINOMA
     Dosage: 200 MG, QD
     Route: 048
     Dates: start: 201805, end: 2018
  5. NEXAVAR [Suspect]
     Active Substance: SORAFENIB
     Indication: HEPATOCELLULAR CARCINOMA
     Dosage: 600 MG DAILY, 2 TABS ON THE 1ST DAY, 3 TABS THE NEXT DAY LIKEWISE ALTERNATE DAYS 3 TABLETS A DAY
     Route: 048
     Dates: start: 20180723, end: 20180805
  6. NEXAVAR [Suspect]
     Active Substance: SORAFENIB
     Indication: HEPATOCELLULAR CARCINOMA
     Dosage: 400 MG DAILY
     Route: 048
     Dates: start: 20180709, end: 20180722
  7. NEXAVAR [Suspect]
     Active Substance: SORAFENIB
     Indication: HEPATOCELLULAR CARCINOMA
     Dosage: 400 MG, DAILY
     Route: 048
     Dates: start: 20180819, end: 2018
  8. NEXAVAR [Suspect]
     Active Substance: SORAFENIB
     Indication: HEPATOCELLULAR CARCINOMA
     Dosage: 200 MG, QD
     Route: 048
     Dates: start: 20180812, end: 20180818

REACTIONS (24)
  - Intra-abdominal fluid collection [Fatal]
  - Urinary retention [None]
  - Typhoid fever [Not Recovered/Not Resolved]
  - Pain in extremity [Not Recovered/Not Resolved]
  - Urinary tract infection [Unknown]
  - Cardiac failure [None]
  - Dysstasia [None]
  - Pain [Not Recovered/Not Resolved]
  - Back pain [Not Recovered/Not Resolved]
  - Hepatocellular carcinoma [Fatal]
  - Chest pain [None]
  - Ammonia increased [Not Recovered/Not Resolved]
  - Metastases to oesophagus [Fatal]
  - Drug ineffective [Fatal]
  - Renal failure [None]
  - Pyrexia [Not Recovered/Not Resolved]
  - Asthenia [Not Recovered/Not Resolved]
  - Mass [None]
  - Speech disorder [None]
  - Pyrexia [Not Recovered/Not Resolved]
  - Oesophageal obstruction [Fatal]
  - Breast pain [Not Recovered/Not Resolved]
  - Gait disturbance [None]
  - Infection [None]

NARRATIVE: CASE EVENT DATE: 2018
